FAERS Safety Report 10765474 (Version 1)
Quarter: 2015Q1

REPORT INFORMATION
  Report Type: Spontaneous
  Country: US (occurrence: None)
  Receive Date: 20150204
  Receipt Date: 20150204
  Transmission Date: 20150721
  Serious: Yes (Other)
  Sender: FDA-Public Use
  Company Number: None

PATIENT
  Age: 80 Year
  Sex: Male

DRUGS (1)
  1. EXJADE [Suspect]
     Active Substance: DEFERASIROX
     Indication: IRON OVERLOAD
     Dosage: 500 MG 3 QD PO
     Route: 048
     Dates: start: 201410

REACTIONS (2)
  - Nausea [None]
  - Hepatic enzyme increased [None]

NARRATIVE: CASE EVENT DATE: 20150131
